FAERS Safety Report 19660899 (Version 1)
Quarter: 2021Q3

REPORT INFORMATION
  Report Type: Spontaneous
  Country: US (occurrence: US)
  Receive Date: 20210805
  Receipt Date: 20210805
  Transmission Date: 20211014
  Serious: Yes (Other)
  Sender: FDA-Public Use
  Company Number: US-HIKMA PHARMACEUTICALS USA INC.-US-H14001-21-03507

PATIENT
  Sex: Female

DRUGS (1)
  1. METHOTREXATE. [Suspect]
     Active Substance: METHOTREXATE
     Indication: PRODUCT USED FOR UNKNOWN INDICATION
     Route: 065

REACTIONS (7)
  - Photophobia [Unknown]
  - Hypersensitivity [Unknown]
  - Feeling abnormal [Unknown]
  - Paraesthesia [Unknown]
  - Skin reaction [Unknown]
  - Pruritus [Unknown]
  - Condition aggravated [Unknown]
